FAERS Safety Report 16134114 (Version 2)
Quarter: 2019Q2

REPORT INFORMATION
  Report Type: Spontaneous
  Country: US (occurrence: US)
  Receive Date: 20190329
  Receipt Date: 20190402
  Transmission Date: 20190711
  Serious: Yes (Other)
  Sender: FDA-Public Use
  Company Number: US-ROCHE-2287547

PATIENT
  Age: 40 Year
  Sex: Male
  Weight: 96.25 kg

DRUGS (19)
  1. LEVAQUIN [Concomitant]
     Active Substance: LEVOFLOXACIN
     Indication: PROPHYLAXIS
     Route: 065
  2. LEVAQUIN [Concomitant]
     Active Substance: LEVOFLOXACIN
     Indication: NEUTROPENIA
  3. NORCO [Concomitant]
     Active Substance: ACETAMINOPHEN\HYDROCODONE BITARTRATE
     Indication: PAIN
     Dosage: 5/325MG
     Route: 065
  4. DEXAMETHASONE. [Concomitant]
     Active Substance: DEXAMETHASONE
     Route: 065
  5. METRONIDAZOLE. [Concomitant]
     Active Substance: METRONIDAZOLE
     Indication: PROPHYLAXIS
     Route: 065
  6. AVASTIN [Suspect]
     Active Substance: BEVACIZUMAB
     Indication: RECTAL CANCER
     Route: 042
     Dates: start: 20190227
  7. AVASTIN [Suspect]
     Active Substance: BEVACIZUMAB
     Dosage: SECOND DOSE
     Route: 042
     Dates: start: 20190318
  8. XANAX [Concomitant]
     Active Substance: ALPRAZOLAM
     Route: 065
  9. FLUOROURACIL. [Concomitant]
     Active Substance: FLUOROURACIL
  10. IRINOTECAN [Concomitant]
     Active Substance: IRINOTECAN
  11. ALOXI [Concomitant]
     Active Substance: PALONOSETRON HYDROCHLORIDE
  12. CINVANTI [Concomitant]
     Active Substance: APREPITANT
  13. PROTONIX (OMEPRAZOLE) [Concomitant]
     Active Substance: OMEPRAZOLE
     Route: 065
  14. PROCTOFOAM HC [Concomitant]
     Active Substance: HYDROCORTISONE ACETATE\PRAMOXINE HYDROCHLORIDE
     Dosage: 3 TO 4 TIMES A DAY
     Route: 054
  15. ATROPINE. [Concomitant]
     Active Substance: ATROPINE
  16. METRONIDAZOLE. [Concomitant]
     Active Substance: METRONIDAZOLE
     Indication: NEUTROPENIA
  17. LEUCOVORIN. [Concomitant]
     Active Substance: LEUCOVORIN
     Indication: PREMEDICATION
     Dosage: ONGOING: UNKNOWN
     Route: 065
  18. ADVIL [Concomitant]
     Active Substance: IBUPROFEN
     Route: 065
  19. ZYPREXA [Concomitant]
     Active Substance: OLANZAPINE
     Route: 065

REACTIONS (7)
  - Nausea [Unknown]
  - Blood pressure decreased [Unknown]
  - Hypoalbuminaemia [Unknown]
  - Jaundice [Unknown]
  - White blood cell count decreased [Unknown]
  - Haemoglobin decreased [Unknown]
  - Haematocrit decreased [Unknown]

NARRATIVE: CASE EVENT DATE: 20190318
